FAERS Safety Report 5632920-4 (Version None)
Quarter: 2008Q1

REPORT INFORMATION
  Report Type: 
  Country: None (occurrence: None)
  Receive Date: 20080221
  Receipt Date: 20080208
  Transmission Date: 20080703
  Serious: Yes (Hospitalization)
  Sender: FDA-Public Use
  Company Number: US-AMGEN-QUU264692

PATIENT
  Sex: Male

DRUGS (6)
  1. NEULASTA [Suspect]
     Indication: CHEMOTHERAPY
     Route: 065
     Dates: start: 20071212
  2. RITUXAN [Concomitant]
  3. CYCLOPHOSPHAMIDE [Concomitant]
  4. DOXORUBICIN HYDROCHLORIDE [Concomitant]
  5. VINCRISTINE [Concomitant]
  6. PREDNISOLONE [Concomitant]

REACTIONS (2)
  - DYSPNOEA [None]
  - RESPIRATORY DISTRESS [None]
